FAERS Safety Report 6925188-X (Version None)
Quarter: 2010Q3

REPORT INFORMATION
  Report Type: 
  Country: None (occurrence: None)
  Receive Date: 20100810
  Receipt Date: 20100623
  Transmission Date: 20110219
  Serious: Yes (Hospitalization, Disabling)
  Sender: FDA-Public Use
  Company Number: ZYD-10-AE-151

PATIENT
  Age: 74 Year
  Sex: Male

DRUGS (2)
  1. LAMOTRIGINE (ZYDUS) [Suspect]
     Indication: BIPOLAR DISORDER
     Dosage: 200MG, DAILY; ORAL
     Route: 048
     Dates: start: 20090202, end: 20091117
  2. WELLBUTRIN [Concomitant]

REACTIONS (7)
  - AMNESIA [None]
  - ASTHENIA [None]
  - BIPOLAR DISORDER [None]
  - BLINDNESS [None]
  - CEREBROVASCULAR ACCIDENT [None]
  - FEELING ABNORMAL [None]
  - PRODUCT SUBSTITUTION ISSUE [None]
